FAERS Safety Report 22536464 (Version 2)
Quarter: 2023Q2

REPORT INFORMATION
  Report Type: Spontaneous
  Country: GB (occurrence: GB)
  Receive Date: 20230608
  Receipt Date: 20230623
  Transmission Date: 20230721
  Serious: Yes (Other)
  Sender: FDA-Public Use
  Company Number: GB-CRESCENT PHARMA LIMITED-2023-GB-00002

PATIENT

DRUGS (1)
  1. NAPROXEN [Suspect]
     Active Substance: NAPROXEN
     Indication: Product used for unknown indication
     Dosage: UNK (6 YEARS)
     Route: 048

REACTIONS (2)
  - Bone non-union [Unknown]
  - Joint injury [Unknown]
